FAERS Safety Report 18496201 (Version 1)
Quarter: 2020Q4

REPORT INFORMATION
  Report Type: Spontaneous
  Country: US (occurrence: US)
  Receive Date: 20201112
  Receipt Date: 20201112
  Transmission Date: 20210114
  Serious: No
  Sender: FDA-Public Use
  Company Number: US-TEVA-2020-US-1847566

PATIENT
  Sex: Female

DRUGS (1)
  1. MESALAMINE. [Suspect]
     Active Substance: MESALAMINE
     Indication: COLITIS ULCERATIVE
     Dosage: FORM OF ADMIN: DELAYED RELEASE CAPSULE
     Route: 065

REACTIONS (2)
  - Maternal exposure during pregnancy [Unknown]
  - Umbilical cord abnormality [Unknown]
